FAERS Safety Report 21706145 (Version 1)
Quarter: 2022Q4

REPORT INFORMATION
  Report Type: Spontaneous
  Country: GB (occurrence: GB)
  Receive Date: 20221209
  Receipt Date: 20221209
  Transmission Date: 20230113
  Serious: Yes (Hospitalization, Other)
  Sender: FDA-Public Use
  Company Number: None

PATIENT
  Age: 58 Year
  Sex: Female
  Weight: 76.64 kg

DRUGS (38)
  1. OMEPRAZOLE [Suspect]
     Active Substance: OMEPRAZOLE
     Indication: Product used for unknown indication
     Dosage: UNK
     Route: 048
  2. LISINOPRIL [Suspect]
     Active Substance: LISINOPRIL
     Indication: Product used for unknown indication
     Dosage: 1 DOSAGE FORM, QD (1 TABLET ONCE A DAY)
     Route: 065
     Dates: start: 20221027, end: 20221103
  3. ATORVASTATIN [Concomitant]
     Active Substance: ATORVASTATIN
     Dosage: 40 MILLIGRAM, QD (1 TABLET ONCE A DAY)
     Route: 065
     Dates: start: 20220811
  4. ATORVASTATIN [Concomitant]
     Active Substance: ATORVASTATIN
     Dosage: 40 MILLIGRAM, QD (1 TABLET ONCE A DAY)
     Route: 065
     Dates: start: 20221027
  5. ATORVASTATIN [Concomitant]
     Active Substance: ATORVASTATIN
     Dosage: 40 MILLIGRAM, QD (1 TABLET ONCE A DAY)
     Route: 065
     Dates: start: 20220822
  6. ATORVASTATIN [Concomitant]
     Active Substance: ATORVASTATIN
     Dosage: 40 MILLIGRAM, QD (1 TABLET ONCE A DAY)
     Route: 065
     Dates: start: 20221103
  7. ATORVASTATIN [Concomitant]
     Active Substance: ATORVASTATIN
     Dosage: 40 MILLIGRAM, QD (1 TABLET ONCE A DAY)
     Route: 065
     Dates: start: 20220923, end: 20221027
  8. ATORVASTATIN [Concomitant]
     Active Substance: ATORVASTATIN
     Dosage: 40 MILLIGRAM, QD (1 TABLET ONCE A DAY)
     Route: 065
     Dates: start: 20221027, end: 20221103
  9. ATORVASTATIN [Concomitant]
     Active Substance: ATORVASTATIN
     Dosage: 40 MILLIGRAM, QD (1 TABLET ONCE A DAY)
     Route: 065
     Dates: start: 20220923
  10. ATORVASTATIN [Concomitant]
     Active Substance: ATORVASTATIN
     Dosage: 40 MILLIGRAM, QD (1 TABLET ONCE A DAY)
     Route: 065
     Dates: start: 20220811, end: 20220822
  11. ATORVASTATIN [Concomitant]
     Active Substance: ATORVASTATIN
     Dosage: 40 MILLIGRAM, QD (1 TABLET ONCE A DAY)
     Route: 065
     Dates: start: 20220822, end: 20220902
  12. ATORVASTATIN [Concomitant]
     Active Substance: ATORVASTATIN
     Dosage: 40 MILLIGRAM, QD (1 TABLET ONCE A DAY)
     Route: 065
     Dates: start: 20220902
  13. ATORVASTATIN [Concomitant]
     Active Substance: ATORVASTATIN
     Dosage: 40 MILLIGRAM, QD (1 TABLET ONCE A DAY)
     Route: 065
     Dates: start: 20220902, end: 20220923
  14. INDAPAMIDE [Concomitant]
     Active Substance: INDAPAMIDE
     Dosage: 2.5 MILLIGRAM, QD (1 TABLET ONCE A DAY.)
     Route: 065
     Dates: start: 20220822
  15. LISINOPRIL [Concomitant]
     Active Substance: LISINOPRIL
     Dosage: 1 DOSAGE FORM, QD (1 TABLET ONCE A DAY)
     Route: 065
     Dates: start: 20220822
  16. LISINOPRIL [Concomitant]
     Active Substance: LISINOPRIL
     Dosage: 1 DOSAGE FORM, QD (1 TABLET ONCE A DAY)
     Route: 065
     Dates: start: 20221103
  17. LISINOPRIL [Concomitant]
     Active Substance: LISINOPRIL
     Dosage: 1 DOSAGE FORM, QD (1 TABLET ONCE A DAY)
     Route: 065
     Dates: start: 20220902, end: 20220923
  18. LISINOPRIL [Concomitant]
     Active Substance: LISINOPRIL
     Dosage: 1 DOSAGE FORM, QD (1 TABLET ONCE A DAY)
     Route: 065
     Dates: start: 20220822
  19. LISINOPRIL [Concomitant]
     Active Substance: LISINOPRIL
     Dosage: 1 DOSAGE FORM, QD (1 TABLET ONCE A DAY)
     Route: 065
     Dates: start: 20220923, end: 20221027
  20. LISINOPRIL [Concomitant]
     Active Substance: LISINOPRIL
     Dosage: 1 DOSAGE FORM, QD (1 TABLET ONCE A DAY)
     Route: 065
     Dates: start: 20221027
  21. LISINOPRIL [Concomitant]
     Active Substance: LISINOPRIL
     Dosage: 1 DOSAGE FORM, QD(1 TABLET ONCE A DAY)
     Route: 065
     Dates: start: 20220923, end: 20221027
  22. LISINOPRIL [Concomitant]
     Active Substance: LISINOPRIL
     Dosage: 1 DOSAGE FORM, QD (1 TABLET ONCE A DAY)
     Route: 065
     Dates: start: 20220811, end: 20220822
  23. LISINOPRIL [Concomitant]
     Active Substance: LISINOPRIL
     Dosage: 1 DOSAGE FORM, QD (1 TABLET ONCE A DAY)
     Route: 065
     Dates: start: 20220902
  24. LISINOPRIL [Concomitant]
     Active Substance: LISINOPRIL
     Dosage: 1 DOSAGE FORM, QD (1 TABLET ONCE A DAY)
     Route: 065
     Dates: start: 20221103
  25. LISINOPRIL [Concomitant]
     Active Substance: LISINOPRIL
     Dosage: 1 DOSAGE FORM, QD (1 TABLET ONCE A DAY)
     Route: 065
     Dates: start: 20220923
  26. LISINOPRIL [Concomitant]
     Active Substance: LISINOPRIL
     Dosage: 1 DOSAGE FORM, QD (1 TABLET ONCE A DAY)
     Route: 065
     Dates: start: 20220811
  27. LISINOPRIL [Concomitant]
     Active Substance: LISINOPRIL
     Dosage: 1 DOSAGE FORM, QD (1 TABLET ONCE A DAY)
     Route: 065
     Dates: start: 20220902
  28. LISINOPRIL [Concomitant]
     Active Substance: LISINOPRIL
     Dosage: 1 DOSAGE FORM, QD (1 TABLET ONCE A DAY)
     Route: 065
     Dates: start: 20221027, end: 20221103
  29. LISINOPRIL [Concomitant]
     Active Substance: LISINOPRIL
     Dosage: 1 DOSAGE FORM, QD (1 TABLET ONCE A DAY)
     Route: 065
     Dates: start: 20220902, end: 20220923
  30. LISINOPRIL [Concomitant]
     Active Substance: LISINOPRIL
     Dosage: 1 DOSAGE FORM, QD (1 TABLET ONCE A DAY)
     Route: 065
     Dates: start: 20220923
  31. LISINOPRIL [Concomitant]
     Active Substance: LISINOPRIL
     Dosage: 1 DOSAGE FORM, QD (1 TABLET ONCE A DAY)
     Route: 065
     Dates: start: 20220822, end: 20220902
  32. LISINOPRIL [Concomitant]
     Active Substance: LISINOPRIL
     Dosage: 1 DOSAGE FORM, QD (1 TABLET ONCE A DAY)
     Route: 065
     Dates: start: 20220822, end: 20220902
  33. LISINOPRIL [Concomitant]
     Active Substance: LISINOPRIL
     Dosage: 1 DOSAGE FORM, QD (1 TABLET ONCE A DAY)
     Route: 065
     Dates: start: 20220811
  34. LISINOPRIL [Concomitant]
     Active Substance: LISINOPRIL
     Dosage: 1 DOSAGE FORM, QD (1 TABLET ONCE A DAY)
     Route: 065
     Dates: start: 20221027
  35. LISINOPRIL [Concomitant]
     Active Substance: LISINOPRIL
     Dosage: 1 DOSAGE FORM, QD (1 TABLET ONCE A DAY)
     Route: 065
     Dates: start: 20221027, end: 20221103
  36. LISINOPRIL [Concomitant]
     Active Substance: LISINOPRIL
     Dosage: 1 DOSAGE FORM, QD (1 TABLET ONCE A DAY)
     Route: 065
     Dates: start: 20220811, end: 20220822
  37. LISINOPRIL [Concomitant]
     Active Substance: LISINOPRIL
     Dosage: UNK
     Route: 065
  38. LISINOPRIL [Concomitant]
     Active Substance: LISINOPRIL
     Dosage: UNK
     Route: 065

REACTIONS (1)
  - Hypomagnesaemia [Recovered/Resolved]
